FAERS Safety Report 6401909-X (Version None)
Quarter: 2009Q4

REPORT INFORMATION
  Report Type: 
  Country: None (occurrence: None)
  Receive Date: 20091015
  Receipt Date: 20091006
  Transmission Date: 20100525
  Serious: Yes (Hospitalization)
  Sender: FDA-Public Use
  Company Number: A0730994A

PATIENT
  Age: 59 Year
  Sex: Female
  Weight: 93.2 kg

DRUGS (5)
  1. AVANDAMET [Suspect]
     Dosage: 250MG TWICE PER DAY
     Route: 048
     Dates: start: 20040101, end: 20070101
  2. AVANDARYL [Suspect]
     Route: 048
     Dates: start: 20070101, end: 20070101
  3. ATENOLOL [Concomitant]
     Dates: start: 20040101
  4. HYDROCHLOROTHIAZIDE [Concomitant]
     Dates: start: 20060101
  5. LIPITOR [Concomitant]
     Dates: start: 20050101

REACTIONS (7)
  - CARDIAC DISORDER [None]
  - CARDIAC FAILURE CONGESTIVE [None]
  - FLUID RETENTION [None]
  - HEADACHE [None]
  - INJURY [None]
  - PAIN [None]
  - TRANSIENT ISCHAEMIC ATTACK [None]
